FAERS Safety Report 7242770-3 (Version None)
Quarter: 2011Q1

REPORT INFORMATION
  Report Type: 
  Country: None (occurrence: None)
  Receive Date: 20110125
  Receipt Date: 20110114
  Transmission Date: 20110831
  Serious: Yes (Hospitalization)
  Sender: FDA-Public Use
  Company Number: NL-KINGPHARMUSA00001-K201001529

PATIENT
  Age: 81 Year
  Sex: Male

DRUGS (8)
  1. LISINOPRIL [Suspect]
     Dosage: 40 MG, QD
     Route: 048
  2. AMLODIPINE [Concomitant]
     Dosage: 10 MG, QD
     Route: 048
  3. OMEPRAZOLE [Concomitant]
     Dosage: 20 MG, QD
     Route: 048
  4. ATENOLOL [Concomitant]
     Dosage: 100 MG, QD
     Route: 048
  5. LISINOPRIL [Suspect]
     Dosage: 20 MG, QD
     Route: 048
  6. THALITONE [Suspect]
     Dosage: 12.5 MG, QD
     Route: 048
  7. DICLOFENAC [Suspect]
     Dosage: 50 MG, TID AS NEEDED
     Route: 048
  8. ACETYLSALICYLIC ACID [Concomitant]
     Dosage: 100 MG, QD
     Route: 048

REACTIONS (8)
  - DIARRHOEA [None]
  - OEDEMA PERIPHERAL [None]
  - HYPERKALAEMIA [None]
  - ABDOMINAL PAIN [None]
  - GASTROENTERITIS [None]
  - RENAL FAILURE ACUTE [None]
  - ANURIA [None]
  - DEHYDRATION [None]
